FAERS Safety Report 12444421 (Version 2)
Quarter: 2016Q2

REPORT INFORMATION
  Report Type: Spontaneous
  Country: IN (occurrence: IN)
  Receive Date: 20160607
  Receipt Date: 20160629
  Transmission Date: 20160815
  Serious: Yes (Death)
  Sender: FDA-Public Use
  Company Number: IN-BAYER-2016-111386

PATIENT
  Sex: Male

DRUGS (1)
  1. ULTRAVIST [Suspect]
     Active Substance: IOPROMIDE
     Indication: ANGIOGRAM
     Dosage: UNK
     Dates: start: 20160601

REACTIONS (1)
  - Death [Fatal]

NARRATIVE: CASE EVENT DATE: 20160601
